FAERS Safety Report 12851002 (Version 3)
Quarter: 2017Q1

REPORT INFORMATION
  Report Type: Report from Study
  Country: JP (occurrence: JP)
  Receive Date: 20161017
  Receipt Date: 20170221
  Transmission Date: 20170428
  Serious: Yes (Death, Hospitalization, Other)
  Sender: FDA-Public Use
  Company Number: JP-UCBSA-2016039502

PATIENT
  Age: 41 Year
  Sex: Female
  Weight: 36.5 kg

DRUGS (11)
  1. LEVETIRACETAM. [Suspect]
     Active Substance: LEVETIRACETAM
     Indication: COMPLEX PARTIAL SEIZURES
     Dosage: 500 MG DAILY
     Route: 041
     Dates: start: 20160227, end: 20160306
  2. E KEPPRA [Suspect]
     Active Substance: LEVETIRACETAM
     Indication: SIMPLE PARTIAL SEIZURES
     Dosage: 1500 MG, 2X/DAY (BID)
     Dates: start: 20160204, end: 201602
  3. AMLODIPINE BESILATE [Concomitant]
     Active Substance: AMLODIPINE BESYLATE
     Indication: PRODUCT USED FOR UNKNOWN INDICATION
     Dosage: 5 MG DAILY
     Route: 048
     Dates: end: 20160212
  4. AZILSARTAN [Concomitant]
     Active Substance: AZILSARTAN KAMEDOXOMIL
     Indication: PRODUCT USED FOR UNKNOWN INDICATION
     Dosage: 20 MG DAILY
     Route: 048
     Dates: end: 20160212
  5. LAMICTAL [Concomitant]
     Active Substance: LAMOTRIGINE
     Indication: SIMPLE PARTIAL SEIZURES
     Dosage: 100 MG DAILY
     Route: 048
     Dates: end: 20160212
  6. SAIREITO [Concomitant]
     Active Substance: HERBALS
     Dosage: 9 G DAILY
     Route: 048
     Dates: end: 20160212
  7. LEVETIRACETAM. [Suspect]
     Active Substance: LEVETIRACETAM
     Indication: SIMPLE PARTIAL SEIZURES
     Dosage: 500 MG, 2X/DAY (BID)
     Route: 041
     Dates: start: 20160212, end: 20160226
  8. AVASTIN [Suspect]
     Active Substance: BEVACIZUMAB
     Indication: PRODUCT USED FOR UNKNOWN INDICATION
     Dosage: 400 MG, ONCE DAILY (QD)
     Dates: start: 20160218, end: 20160218
  9. E KEPPRA [Suspect]
     Active Substance: LEVETIRACETAM
     Indication: COMPLEX PARTIAL SEIZURES
  10. TEGRETOL [Concomitant]
     Active Substance: CARBAMAZEPINE
     Indication: SIMPLE PARTIAL SEIZURES
     Dosage: 200 MG DAILY
     Route: 048
     Dates: end: 20160212
  11. PREDONINE [Concomitant]
     Active Substance: PREDNISOLONE
     Indication: PRODUCT USED FOR UNKNOWN INDICATION
     Dosage: 5 MG DAILY
     Route: 048
     Dates: end: 20160212

REACTIONS (7)
  - Hepatic function abnormal [Not Recovered/Not Resolved]
  - Glioblastoma [Fatal]
  - Urinary bladder haemorrhage [Recovering/Resolving]
  - Hypoproteinaemia [Not Recovered/Not Resolved]
  - Platelet count decreased [Recovering/Resolving]
  - Septic shock [Fatal]
  - Hypoalbuminaemia [Not Recovered/Not Resolved]

NARRATIVE: CASE EVENT DATE: 2016
